FAERS Safety Report 23904233 (Version 1)
Quarter: 2024Q2

REPORT INFORMATION
  Report Type: Report from Study
  Country: GR (occurrence: GR)
  Receive Date: 20240527
  Receipt Date: 20240527
  Transmission Date: 20240715
  Serious: Yes (Death, Hospitalization, Other)
  Sender: FDA-Public Use
  Company Number: GR-ABBVIE-5734963

PATIENT
  Age: 83 Year
  Sex: Female

DRUGS (3)
  1. CARBIDOPA\LEVODOPA [Suspect]
     Active Substance: CARBIDOPA\LEVODOPA
     Indication: Parkinson^s disease
     Dosage: MORNING DOSE: 12.2ML; CONTINUOUS RATE: 2.7ML/H; EXTRA DOSE: 1.0ML
     Route: 050
     Dates: start: 20240422, end: 20240427
  2. CARBIDOPA\LEVODOPA [Suspect]
     Active Substance: CARBIDOPA\LEVODOPA
     Dosage: MORNING DOSE: 12.2ML; CONTINUOUS RATE: 3.0ML/H; EXTRA DOSE: 1.0ML
     Route: 050
     Dates: start: 20201014, end: 202404
  3. CARBIDOPA\LEVODOPA [Suspect]
     Active Substance: CARBIDOPA\LEVODOPA
     Dosage: MORNING DOSE: 5.0ML; CONTINUOUS RATE: 2.4ML/H; EXTRA DOSE: 1.0ML
     Route: 050
     Dates: start: 20240508

REACTIONS (6)
  - Cardiac arrest [Fatal]
  - Pneumonia aspiration [Recovered/Resolved]
  - Intentional product misuse [Not Recovered/Not Resolved]
  - Condition aggravated [Not Recovered/Not Resolved]
  - Tachypnoea [Unknown]
  - Dysphagia [Not Recovered/Not Resolved]

NARRATIVE: CASE EVENT DATE: 20240420
